FAERS Safety Report 12505163 (Version 2)
Quarter: 2016Q3

REPORT INFORMATION
  Report Type: Spontaneous
  Country: BR (occurrence: BR)
  Receive Date: 20160628
  Receipt Date: 20160824
  Transmission Date: 20161109
  Serious: Yes (Hospitalization)
  Sender: FDA-Public Use
  Company Number: BR-GLAXOSMITHKLINE-BR2016GSK091058

PATIENT
  Sex: Male

DRUGS (2)
  1. AEROLIN [Suspect]
     Active Substance: ALBUTEROL
     Indication: PRODUCT USED FOR UNKNOWN INDICATION
     Dosage: 4 PUFF(S), UNK
  2. AEROLIN [Suspect]
     Active Substance: ALBUTEROL
     Dosage: 4 PUFF(S), QD

REACTIONS (2)
  - Product quality issue [Unknown]
  - Ill-defined disorder [Unknown]
